FAERS Safety Report 12439209 (Version 7)
Quarter: 2017Q3

REPORT INFORMATION
  Report Type: Spontaneous
  Country: US (occurrence: US)
  Receive Date: 20160606
  Receipt Date: 20170712
  Transmission Date: 20171127
  Serious: Yes (Hospitalization)
  Sender: FDA-Public Use
  Company Number: US-PFIZER INC-2016283379

PATIENT
  Age: 75 Year
  Sex: Female
  Weight: 92.99 kg

DRUGS (14)
  1. ALENDRONATE [Concomitant]
     Active Substance: ALENDRONATE SODIUM
     Indication: OSTEOPOROSIS
     Dosage: 70 MG, WEEKLY, (ONCE A WEEK AS DIRECTED)
     Route: 048
  2. IBUPROFEN. [Concomitant]
     Active Substance: IBUPROFEN
     Indication: PAIN
     Dosage: 600 MG, AS NEEDED, (TAKE 1 TABLET THREE TIMES DAILY)
     Route: 048
  3. TRIXAICIN HP [Concomitant]
     Active Substance: CAPSICUM OLEORESIN
     Indication: OSTEOARTHRITIS
  4. LYRICA [Suspect]
     Active Substance: PREGABALIN
     Indication: NEURALGIA
     Dosage: UNK, 3X/DAY
     Route: 048
     Dates: start: 2015, end: 20160531
  5. LYRICA [Suspect]
     Active Substance: PREGABALIN
     Dosage: 75 MG, 3X/DAY
     Route: 048
  6. METFORMIN [Concomitant]
     Active Substance: METFORMIN HYDROCHLORIDE
     Indication: DIABETES MELLITUS
     Dosage: 1000 MG, 2X/DAY, (AS DIRECTED)
     Route: 048
  7. HYDROCODONE-ACETAMINOPHEN [Concomitant]
     Active Substance: ACETAMINOPHEN\HYDROCODONE
     Indication: PAIN
     Dosage: 1 DF, AS NEEDED, (HYDROCODONE 10 MG/ ACETAMINOPHEN 325 MG) (1 TABLET EVERY SIX TO EIGHT HOURS)
     Route: 048
  8. LOSARTAN POTASSIUM AND HYDROCHLOROTHIAZIDE [Concomitant]
     Active Substance: HYDROCHLOROTHIAZIDE\LOSARTAN POTASSIUM
     Indication: BLOOD PRESSURE ABNORMAL
     Dosage: 1 DF, 1X/DAY, (LOSARTAN 100 MG/ HYDROCHLOROTHIAZIDE 25 MG) (TAKE 1 TABLET ONCE A DAY AS DIRECTED)
     Route: 048
  9. LOSARTAN POTASSIUM AND HYDROCHLOROTHIAZIDE [Concomitant]
     Active Substance: HYDROCHLOROTHIAZIDE\LOSARTAN POTASSIUM
     Indication: RENAL DISORDER
  10. TRIXAICIN HP [Concomitant]
     Active Substance: CAPSICUM OLEORESIN
     Indication: PAIN
     Dosage: UNK UNK, AS NEEDED, (APPLY 1 A SMALL AMOUNT TO AFFECTED AREA THREE TIMES A DAY AS NEEDED)
  11. BUTALBITAL, ACETAMINOPHEN, AND CAFFEINE [Concomitant]
     Active Substance: ACETAMINOPHEN\BUTALBITAL\CAFFEINE
     Indication: HEADACHE
     Dosage: 2 DF, AS NEEDED, (BUTALBITAL 50 MG/ACETAMINOPHEN 325 MG/CAFFEINE 40 MG, 2 TABLET ONCE DAY AS NEEDED)
     Route: 048
  12. LYRICA [Suspect]
     Active Substance: PREGABALIN
     Indication: LUMBAR RADICULOPATHY
     Dosage: 100 MG, 1 CAPSULE THREE TIMES A DAY
     Route: 048
  13. AMLODIPINE [Concomitant]
     Active Substance: AMLODIPINE BESYLATE
     Indication: BLOOD PRESSURE ABNORMAL
     Dosage: 10 MG, 1X/DAY
     Route: 048
  14. ATORVASTATIN [Concomitant]
     Active Substance: ATORVASTATIN
     Indication: BLOOD CHOLESTEROL ABNORMAL
     Dosage: 40 MG, 1X/DAY, (AT BEDTIME )
     Route: 048

REACTIONS (4)
  - Pain in extremity [Unknown]
  - Foot fracture [Not Recovered/Not Resolved]
  - Pain [Unknown]
  - Drug dose omission [Unknown]

NARRATIVE: CASE EVENT DATE: 20160531
